FAERS Safety Report 24086328 (Version 2)
Quarter: 2024Q3

REPORT INFORMATION
  Report Type: Spontaneous
  Country: PT (occurrence: PT)
  Receive Date: 20240712
  Receipt Date: 20240827
  Transmission Date: 20241017
  Serious: Yes (Hospitalization, Other)
  Sender: NOVARTIS
  Company Number: PT-HALEON-2186350

PATIENT
  Age: 92 Year
  Sex: Male

DRUGS (3)
  1. TERBINAFINE [Suspect]
     Active Substance: TERBINAFINE
     Indication: Onychomycosis
     Dosage: 1 PILL (250 MG) PER DAY, WAS STARTED 1 MONTH BEFORE HOSPITALIZATION
     Route: 065
  2. BETAHISTINE HYDROCHLORIDE [Concomitant]
     Active Substance: BETAHISTINE HYDROCHLORIDE
     Indication: Product used for unknown indication
     Dosage: 16 MG  OF ?-HISTINA (1 PILL 2 TIMES PER DAY)
     Route: 065
  3. HYDROCHLOROTHIAZIDE\LOSARTAN [Concomitant]
     Active Substance: HYDROCHLOROTHIAZIDE\LOSARTAN
     Indication: Product used for unknown indication
     Dosage: (1 PILL PER DAY), LOSARTAN + HYDROCHLOROTHIAZIDE 50/12 MG
     Route: 065

REACTIONS (2)
  - Drug-induced liver injury [Recovering/Resolving]
  - Hepatitis toxic [Recovering/Resolving]
